FAERS Safety Report 26006450 (Version 1)
Quarter: 2025Q4

REPORT INFORMATION
  Report Type: Spontaneous
  Country: GB (occurrence: GB)
  Receive Date: 20251106
  Receipt Date: 20251106
  Transmission Date: 20260118
  Serious: Yes (Hospitalization)
  Sender: SANDOZ
  Company Number: GB-SZ09-PHHY2011GB83881

PATIENT
  Age: 28 Year
  Sex: Female

DRUGS (3)
  1. CITALOPRAM [Suspect]
     Active Substance: CITALOPRAM
     Indication: Product used for unknown indication
     Dosage: UNK (FOUR-WEEKS SUPPLY)
     Route: 065
  2. CODEINE PHOSPHATE [Suspect]
     Active Substance: CODEINE PHOSPHATE
     Indication: Product used for unknown indication
     Dosage: 20 DOSAGE FORM
     Route: 048
  3. ACETAMINOPHEN [Suspect]
     Active Substance: ACETAMINOPHEN
     Indication: Product used for unknown indication
     Dosage: 64 DOSAGE FORM
     Route: 048

REACTIONS (4)
  - Suicide attempt [Unknown]
  - Depression [Unknown]
  - Loss of consciousness [Unknown]
  - Intentional overdose [Unknown]
